FAERS Safety Report 9785519 (Version 1)
Quarter: 2013Q4

REPORT INFORMATION
  Report Type: Report from Study
  Country: GR (occurrence: GR)
  Receive Date: 20131227
  Receipt Date: 20131227
  Transmission Date: 20140711
  Serious: Yes (Death)
  Sender: FDA-Public Use
  Company Number: GR-ASTELLAS-2013US013328

PATIENT
  Age: 57 Year
  Sex: Male

DRUGS (1)
  1. ERLOTINIB TABLET [Suspect]
     Indication: ADENOCARCINOMA
     Dosage: 150 UNK, UID/QD
     Route: 065
     Dates: start: 20120402, end: 20120414

REACTIONS (2)
  - Off label use [Unknown]
  - Death [Fatal]
